FAERS Safety Report 8154188-X (Version None)
Quarter: 2012Q1

REPORT INFORMATION
  Report Type: 
  Country: None (occurrence: None)
  Receive Date: 20120217
  Receipt Date: 20120217
  Transmission Date: 20120608
  Serious: Yes (Other)
  Sender: FDA-Public Use
  Company Number: None

PATIENT
  Age: 83 Year
  Sex: Female

DRUGS (5)
  1. MILK THISTLE [Concomitant]
  2. OMEPRAZOLE [Concomitant]
  3. CETIRIZINE [Concomitant]
  4. LETAIRIS [Suspect]
     Indication: PULMONARY HYPERTENSION
     Dosage: LETAIRIS 5 MG DAILY
     Dates: start: 20111201
  5. AMLODIPINE [Concomitant]

REACTIONS (2)
  - FOOD ALLERGY [None]
  - PRURITUS [None]
